FAERS Safety Report 22078215 (Version 12)
Quarter: 2023Q4

REPORT INFORMATION
  Report Type: Report from Study
  Country: CA (occurrence: CA)
  Receive Date: 20230309
  Receipt Date: 20231103
  Transmission Date: 20240109
  Serious: Yes (Hospitalization, Other)
  Sender: FDA-Public Use
  Company Number: CA-KOREA IPSEN Pharma-2022-18104

PATIENT
  Age: 50 Year
  Sex: Male

DRUGS (7)
  1. LANREOTIDE ACETATE [Suspect]
     Active Substance: LANREOTIDE ACETATE
     Indication: Gastroenteropancreatic neuroendocrine tumour disease
     Dosage: 120 MG EVERY 4 WEEKS
     Route: 058
     Dates: start: 20190522
  2. LANREOTIDE ACETATE [Suspect]
     Active Substance: LANREOTIDE ACETATE
     Route: 058
     Dates: start: 20230817
  3. SYMBICORT [Concomitant]
     Active Substance: BUDESONIDE\FORMOTEROL FUMARATE DIHYDRATE
  4. DEXLANSOPRAZOLE SUMATRIPTAN [Concomitant]
  5. HYDROMORPHONE [Concomitant]
     Active Substance: HYDROMORPHONE
  6. PANCREASE ENZYME [Concomitant]
  7. METFORMIN [Concomitant]
     Active Substance: METFORMIN HYDROCHLORIDE

REACTIONS (11)
  - Pyrexia [Unknown]
  - Haematological infection [Unknown]
  - Malignant neoplasm progression [Not Recovered/Not Resolved]
  - Abdominal pain upper [Not Recovered/Not Resolved]
  - SARS-CoV-2 test positive [Recovered/Resolved]
  - Pain [Not Recovered/Not Resolved]
  - Breakthrough pain [Unknown]
  - Off label use [Unknown]
  - Off label use [Unknown]
  - Off label use [Unknown]
  - Off label use [Unknown]

NARRATIVE: CASE EVENT DATE: 20220530
